FAERS Safety Report 5328188-9 (Version None)
Quarter: 2007Q3

REPORT INFORMATION
  Report Type: 
  Country: None (occurrence: None)
  Receive Date: 20070514
  Receipt Date: 20070501
  Transmission Date: 20080115
  Serious: Yes (Hospitalization)
  Sender: FDA-Public Use
  Company Number: 2007-01182

PATIENT
  Age: 56 Year
  Sex: Male
  Weight: 101.3 kg

DRUGS (5)
  1. VELCADE [Suspect]
     Indication: MANTLE CELL LYMPHOMA
     Dosage: 1.00 MG/M2, INTRAVENOUS
     Route: 042
     Dates: start: 20070406, end: 20070406
  2. GEMCITABINE [Suspect]
     Indication: MANTLE CELL LYMPHOMA
     Dosage: 1000.00 MG/M2, INTRAVENOUS
     Route: 042
     Dates: start: 20070406, end: 20070406
  3. CORTISONE ACETATE TAB [Concomitant]
  4. ADVIL [Concomitant]
  5. ACETAMINOPHEN [Concomitant]

REACTIONS (11)
  - BACTERIAL INFECTION [None]
  - BLOOD CULTURE POSITIVE [None]
  - CHEST DISCOMFORT [None]
  - INCORRECT DOSE ADMINISTERED [None]
  - INFECTION [None]
  - LUNG INFILTRATION [None]
  - NEUTROPHIL COUNT DECREASED [None]
  - OXYGEN SATURATION DECREASED [None]
  - PLEURAL EFFUSION [None]
  - PNEUMONITIS [None]
  - PYREXIA [None]
